FAERS Safety Report 5596145-3 (Version None)
Quarter: 2007Q4

REPORT INFORMATION
  Report Type: 
  Country: None (occurrence: None)
  Receive Date: 20071218
  Receipt Date: 20061211
  Transmission Date: 20080405
  Serious: Yes (Other)
  Sender: FDA-Public Use
  Company Number: 2006092920

PATIENT
  Age: 61 Year
  Sex: Male
  Weight: 89.8 kg

DRUGS (2)
  1. BEXTRA [Suspect]
     Indication: INFLAMMATION
     Dosage: 10 MG (10 MG, 1 IN 1), ORAL
     Route: 048
     Dates: start: 20030813
  2. BEXTRA [Suspect]
     Indication: PAIN
     Dosage: 10 MG (10 MG, 1 IN 1), ORAL
     Route: 048
     Dates: start: 20030813

REACTIONS (2)
  - CARDIAC FAILURE CONGESTIVE [None]
  - MYOCARDIAL INFARCTION [None]
